FAERS Safety Report 5149430-3 (Version None)
Quarter: 2006Q4

REPORT INFORMATION
  Report Type: 
  Country: None (occurrence: None)
  Receive Date: 20061113
  Receipt Date: 20060109
  Transmission Date: 20070319
  Serious: No
  Sender: FDA-Public Use
  Company Number: S2006US00054

PATIENT
  Sex: Female

DRUGS (1)
  1. COREG [Suspect]
     Route: 065

REACTIONS (1)
  - PANIC ATTACK [None]
